FAERS Safety Report 9911631 (Version 1)
Quarter: 2014Q1

REPORT INFORMATION
  Report Type: Spontaneous
  Country: ZA (occurrence: ZA)
  Receive Date: 20140219
  Receipt Date: 20140219
  Transmission Date: 20141002
  Serious: Yes (Other)
  Sender: FDA-Public Use
  Company Number: PHHY2014ZA017182

PATIENT
  Age: 8 Year
  Sex: Female

DRUGS (2)
  1. TACROLIMUS [Suspect]
     Indication: IMMUNOSUPPRESSION
     Dosage: UNK
  2. PREDNISONE [Concomitant]
     Indication: IMMUNOSUPPRESSION

REACTIONS (5)
  - Food allergy [Unknown]
  - Blood immunoglobulin E increased [Unknown]
  - Pruritus [Unknown]
  - Eczema [Unknown]
  - Infection [Unknown]
